FAERS Safety Report 9397449 (Version 1)
Quarter: 2013Q3

REPORT INFORMATION
  Report Type: Spontaneous
  Country: CR (occurrence: CR)
  Receive Date: 20130712
  Receipt Date: 20130712
  Transmission Date: 20140515
  Serious: Yes (Other)
  Sender: FDA-Public Use
  Company Number: CR-PFIZER INC-2013205205

PATIENT
  Age: 77 Year
  Sex: Male
  Weight: 60 kg

DRUGS (4)
  1. LYRICA [Suspect]
     Dosage: 300 MG, 2X/DAY
     Route: 048
     Dates: start: 20100101
  2. ENALAPRIL [Concomitant]
     Dosage: 20 MG
     Route: 048
     Dates: start: 19930101
  3. TAMOXIFEN [Concomitant]
     Dosage: UNK
     Route: 048
     Dates: start: 20120112
  4. ESPASMO DIGESTOMEN [Concomitant]
     Dosage: UNK
     Route: 048
     Dates: start: 20090101

REACTIONS (2)
  - Deafness [Unknown]
  - Vision blurred [Unknown]
